FAERS Safety Report 9196211 (Version 1)
Quarter: 2013Q1

REPORT INFORMATION
  Report Type: Spontaneous
  Country: ES (occurrence: ES)
  Receive Date: 20130328
  Receipt Date: 20130328
  Transmission Date: 20140127
  Serious: Yes (Other)
  Sender: FDA-Public Use
  Company Number: ES-JNJFOC-20130312864

PATIENT
  Sex: Male

DRUGS (1)
  1. NICOTINE GUM [Suspect]
     Indication: SMOKING CESSATION THERAPY
     Route: 002

REACTIONS (1)
  - Migraine [Unknown]
